FAERS Safety Report 20141615 (Version 1)
Quarter: 2021Q4

REPORT INFORMATION
  Report Type: Spontaneous
  Country: US (occurrence: None)
  Receive Date: 20211202
  Receipt Date: 20211202
  Transmission Date: 20220303
  Serious: No
  Sender: FDA-Public Use
  Company Number: None

PATIENT
  Age: 71 Year
  Sex: Male
  Weight: 69.75 kg

DRUGS (3)
  1. WIXELA INHUB [Suspect]
     Active Substance: FLUTICASONE PROPIONATE\SALMETEROL XINAFOATE
     Indication: Chronic obstructive pulmonary disease
     Dosage: OTHER STRENGTH : MCG;?OTHER QUANTITY : 2 INHALATION(S);?FREQUENCY : TWICE A DAY;?
     Route: 048
     Dates: start: 20211115, end: 20211126
  2. COMBIVENT RESPRMAT [Concomitant]
  3. MONOLUCAST [Concomitant]

REACTIONS (8)
  - Drug ineffective [None]
  - Increased bronchial secretion [None]
  - Cough [None]
  - Dyspnoea [None]
  - Asthenia [None]
  - Influenza like illness [None]
  - Aphonia [None]
  - Therapy cessation [None]

NARRATIVE: CASE EVENT DATE: 20211129
